FAERS Safety Report 7325866-7 (Version None)
Quarter: 2011Q1

REPORT INFORMATION
  Report Type: 
  Country: None (occurrence: None)
  Receive Date: 20110302
  Receipt Date: 20110225
  Transmission Date: 20110831
  Serious: Yes (Other)
  Sender: FDA-Public Use
  Company Number: US-PFIZER INC-2008022014

PATIENT
  Sex: Female
  Weight: 74.83 kg

DRUGS (29)
  1. CHANTIX [Suspect]
     Dosage: 1 MG, 2X/DAY
     Route: 048
     Dates: start: 20080101
  2. CELEXA [Concomitant]
     Dosage: 20 MG, 1X/DAY
     Route: 048
  3. CALCIUM WITH VITAMIN D [Concomitant]
     Dosage: 500 MG, 2X/DAY
  4. VALSARTAN [Suspect]
     Indication: HYPERTENSION
     Dosage: UNK
     Route: 048
  5. PRILOSEC [Concomitant]
     Dosage: 20 MG, 1X/DAY
  6. XANAX [Concomitant]
     Dosage: 1 MG, 2X/DAY
  7. LOPRESSOR [Concomitant]
     Indication: HYPERTENSION
     Dosage: UNK
  8. CELEBREX [Suspect]
     Indication: OSTEOARTHRITIS
     Dosage: UNK
     Route: 048
  9. VASOTEC [Suspect]
     Indication: HYPERTENSION
     Dosage: UNK
     Route: 048
  10. NITROGLYCERIN [Concomitant]
     Dosage: 2.5 MG, 2X/DAY
     Route: 048
  11. ASCORBIC ACID [Concomitant]
     Dosage: 1000 MG, 2X/DAY
  12. CHANTIX [Suspect]
     Dosage: UNK
     Route: 048
  13. CELEBREX [Suspect]
     Indication: RHEUMATOID ARTHRITIS
  14. VITAMIN B6 [Concomitant]
     Indication: DIABETIC NEUROPATHY
     Dosage: 100 MG, 1X/DAY
  15. GLIPIZIDE [Suspect]
     Indication: DIABETES MELLITUS
     Dosage: 5 MG, 3X/DAY
     Route: 048
     Dates: start: 20090101
  16. LASIX [Concomitant]
     Dosage: UNK
  17. LANTUS [Concomitant]
     Indication: DIABETES MELLITUS
     Dosage: 25 UNITS, 2X/DAY
  18. CHANTIX [Suspect]
     Indication: SMOKING CESSATION THERAPY
     Dosage: 0.5 MG, DAILY
     Route: 048
     Dates: start: 20070101, end: 20100101
  19. NOVOLOG [Suspect]
     Indication: DIABETES MELLITUS
     Dosage: UNK
     Dates: end: 20090101
  20. ASPIRIN [Concomitant]
     Dosage: 81 MG, 1X/DAY
  21. VITAMIN D [Concomitant]
     Dosage: UNK UG, WEEKLY
     Route: 048
  22. IMODIUM [Concomitant]
     Dosage: UNK
     Route: 048
  23. CHANTIX [Suspect]
     Dosage: 0.5 MG, 1X/DAY
     Dates: start: 20080101
  24. CHANTIX [Suspect]
     Dosage: UNK
     Dates: start: 20090601
  25. CHANTIX [Suspect]
     Dosage: 1 MG, 2X/DAY
     Route: 048
     Dates: start: 20090901
  26. ATARAX [Concomitant]
     Dosage: 10 MG, 2X/DAY
  27. NEURONTIN [Concomitant]
     Indication: DIABETIC NEUROPATHY
     Dosage: 600 MG, 2X/DAY
     Route: 048
  28. DITROPAN [Concomitant]
     Dosage: 5 MG, 2X/DAY
     Route: 048
  29. VITAMIN B [Concomitant]
     Dosage: UNK
     Route: 048

REACTIONS (17)
  - DEPRESSION [None]
  - NAUSEA [None]
  - BLOOD GLUCOSE DECREASED [None]
  - HYPERTENSION [None]
  - DECREASED APPETITE [None]
  - SOMNOLENCE [None]
  - MUSCLE SPASMS [None]
  - HYPERSENSITIVITY [None]
  - TREMOR [None]
  - DRUG HYPERSENSITIVITY [None]
  - STRESS [None]
  - DRUG INEFFECTIVE [None]
  - BLOOD GLUCOSE INCREASED [None]
  - BLOOD IRON DECREASED [None]
  - DRY SKIN [None]
  - FRUSTRATION [None]
  - VOMITING [None]
